FAERS Safety Report 5965594-3 (Version None)
Quarter: 2008Q4

REPORT INFORMATION
  Report Type: 
  Country: None (occurrence: None)
  Receive Date: 20081121
  Receipt Date: 20081107
  Transmission Date: 20090506
  Serious: Yes (Death)
  Sender: FDA-Public Use
  Company Number: 107#08#2008-05722

PATIENT
  Age: 75 Year
  Sex: Female

DRUGS (1)
  1. VERAPAMIL [Suspect]
     Indication: COMPLETED SUICIDE
     Dosage: ABOUT 40 TABLETS ORAL
     Route: 048

REACTIONS (19)
  - ATRIOVENTRICULAR BLOCK [None]
  - AZOTAEMIA [None]
  - BLOOD ELECTROLYTES ABNORMAL [None]
  - BRAIN OEDEMA [None]
  - CARDIOMYOPATHY [None]
  - DEHYDRATION [None]
  - HEPATIC NECROSIS [None]
  - HYPOTENSION [None]
  - INTENTIONAL OVERDOSE [None]
  - LOSS OF CONSCIOUSNESS [None]
  - METABOLIC ACIDOSIS [None]
  - MYOCARDIAL FIBROSIS [None]
  - MYOCARDIAL HAEMORRHAGE [None]
  - NECROSIS [None]
  - NEPHRITIS [None]
  - NERVOUS SYSTEM DISORDER [None]
  - POISONING [None]
  - PULMONARY OEDEMA [None]
  - RESPIRATORY ARREST [None]
